FAERS Safety Report 10505004 (Version 1)
Quarter: 2014Q4

REPORT INFORMATION
  Report Type: Spontaneous
  Country: CO (occurrence: CO)
  Receive Date: 20141008
  Receipt Date: 20141008
  Transmission Date: 20150528
  Serious: Yes (Life-Threatening)
  Sender: FDA-Public Use
  Company Number: CO-ACTELION-A-CH2014-105990

PATIENT
  Age: 19 Year
  Sex: Male

DRUGS (4)
  1. TRACLEER [Suspect]
     Active Substance: BOSENTAN\BOSENTAN MONOHYDRATE
     Dosage: 125 MG, BID
     Route: 048
     Dates: start: 201409
  2. SILDENAFIL. [Concomitant]
     Active Substance: SILDENAFIL
     Route: 048
  3. TRACLEER [Suspect]
     Active Substance: BOSENTAN\BOSENTAN MONOHYDRATE
     Indication: PULMONARY ARTERIAL HYPERTENSION
     Dosage: 125 MG, BID
     Route: 048
     Dates: start: 20140926, end: 20140928
  4. VENTAVIS [Suspect]
     Active Substance: ILOPROST
     Indication: PULMONARY ARTERIAL HYPERTENSION
     Route: 055

REACTIONS (8)
  - Product size issue [Unknown]
  - Anxiety [Recovering/Resolving]
  - Localised oedema [Recovering/Resolving]
  - Hypoxia [Recovering/Resolving]
  - Product colour issue [Unknown]
  - Oxygen consumption increased [Recovering/Resolving]
  - Musculoskeletal pain [Recovering/Resolving]
  - Suspected counterfeit product [Unknown]

NARRATIVE: CASE EVENT DATE: 20140926
